FAERS Safety Report 6584772-6 (Version None)
Quarter: 2010Q1

REPORT INFORMATION
  Report Type: 
  Country: None (occurrence: None)
  Receive Date: 20100204
  Receipt Date: 20100121
  Transmission Date: 20100710
  Serious: Yes (Hospitalization)
  Sender: FDA-Public Use
  Company Number: THYR-1000256

PATIENT
  Age: 62 Year
  Sex: Female

DRUGS (1)
  1. THYROGEN [Suspect]
     Dosage: 0.9 MG, QD, INTRAMUSCULAR
     Route: 030
     Dates: start: 20100110, end: 20100111

REACTIONS (2)
  - ALTERED STATE OF CONSCIOUSNESS [None]
  - TRANSIENT ISCHAEMIC ATTACK [None]
